FAERS Safety Report 17686047 (Version 9)
Quarter: 2023Q2

REPORT INFORMATION
  Report Type: Report from Study
  Country: FR (occurrence: FR)
  Receive Date: 20200420
  Receipt Date: 20230626
  Transmission Date: 20230721
  Serious: Yes (Hospitalization, Other)
  Sender: FDA-Public Use
  Company Number: FR-BAYER-2020-029051

PATIENT
  Age: 72 Year
  Sex: Female
  Weight: 55 kg

DRUGS (28)
  1. REGORAFENIB [Suspect]
     Active Substance: REGORAFENIB
     Indication: Cholangiocarcinoma
     Dosage: 160 MG
     Route: 048
     Dates: start: 20191015, end: 20191030
  2. REGORAFENIB [Suspect]
     Active Substance: REGORAFENIB
     Indication: Metastasis
     Dosage: 160 MG, QD
     Route: 048
     Dates: end: 20200213
  3. REGORAFENIB [Suspect]
     Active Substance: REGORAFENIB
     Indication: Cholangiocarcinoma
     Dosage: 120 MG
     Route: 048
     Dates: end: 20200327
  4. REGORAFENIB [Suspect]
     Active Substance: REGORAFENIB
     Indication: Cholangiocarcinoma
     Dosage: 120 MG
     Route: 048
     Dates: end: 20200609
  5. REGORAFENIB [Suspect]
     Active Substance: REGORAFENIB
     Indication: Cholangiocarcinoma
     Dosage: 120 MG
     Route: 048
     Dates: end: 20200711
  6. REGORAFENIB [Suspect]
     Active Substance: REGORAFENIB
     Indication: Cholangiocarcinoma
     Dosage: UNK
  7. BAVENCIO [Suspect]
     Active Substance: AVELUMAB
     Indication: Cholangiocarcinoma
     Dosage: 620 MG
     Route: 042
     Dates: start: 20191029, end: 20191029
  8. BAVENCIO [Suspect]
     Active Substance: AVELUMAB
     Indication: Metastasis
     Dosage: 620 MG
     Route: 042
     Dates: end: 20200206
  9. BAVENCIO [Suspect]
     Active Substance: AVELUMAB
     Indication: Cholangiocarcinoma
     Dosage: 620 MG
     Route: 042
     Dates: end: 20200402
  10. BAVENCIO [Suspect]
     Active Substance: AVELUMAB
     Indication: Cholangiocarcinoma
     Dosage: 620 MG
     Route: 042
     Dates: end: 20200527
  11. BAVENCIO [Suspect]
     Active Substance: AVELUMAB
     Indication: Cholangiocarcinoma
     Dosage: 620 MG
     Route: 042
     Dates: end: 20200729
  12. BAVENCIO [Suspect]
     Active Substance: AVELUMAB
     Indication: Cholangiocarcinoma
     Dosage: 550 MG
  13. METFORMIN HYDROCHLORIDE [Concomitant]
     Active Substance: METFORMIN HYDROCHLORIDE
     Dosage: 500 MG 1-0-1 AT MEALS
     Route: 048
  14. BROMAZEPAM [Concomitant]
     Active Substance: BROMAZEPAM
     Indication: Anxiety
     Dosage: 3 MG, HS
     Route: 048
  15. IMODIUM [Concomitant]
     Active Substance: LOPERAMIDE HYDROCHLORIDE
     Indication: Prophylaxis
     Dosage: UNK
  16. HYDROCHLOROTHIAZIDE\LOSARTAN [Concomitant]
     Active Substance: HYDROCHLOROTHIAZIDE\LOSARTAN
     Dosage: 25 MG + 100 MG 1-0-0
  17. PRAMIPEXOLE [Concomitant]
     Active Substance: PRAMIPEXOLE
     Dosage: 0.26 MG + 0.18 MG 0-0-1
  18. PRAMIPEXOLE [Concomitant]
     Active Substance: PRAMIPEXOLE
     Dosage: 0.18 MG 0-0-1UNK
  19. PHLOROGLUCINOL [Concomitant]
     Active Substance: PHLOROGLUCINOL
     Dosage: UNK
     Route: 048
  20. MOVICOL [MACROGOL 3350;POTASSIUM CHLORIDE;SODIUM BICARBONATE;SODIU [Concomitant]
     Dosage: 2 SACHETS QD
  21. EUPANTOL [Concomitant]
     Active Substance: PANTOPRAZOLE SODIUM
     Dosage: 1 TABLET QD
  22. POTASSIUM CHLORIDE [Concomitant]
     Active Substance: POTASSIUM CHLORIDE
     Dosage: 1 CAPSULE QD
  23. BROMAZEPAM [Concomitant]
     Active Substance: BROMAZEPAM
     Dosage: UNK
     Route: 048
  24. PRAMIPEXOLE [Concomitant]
     Active Substance: PRAMIPEXOLE
     Dosage: UNK
     Route: 048
  25. HYDROCHLOROTHIAZIDE\LOSARTAN POTASSIUM [Concomitant]
     Active Substance: HYDROCHLOROTHIAZIDE\LOSARTAN POTASSIUM
     Dosage: UNK
     Route: 048
  26. DEXPRAMIPEXOLE DIHYDROCHLORIDE MONOHYDRATE [Concomitant]
  27. NITROFURANTOIN [Concomitant]
     Active Substance: NITROFURANTOIN
  28. POLYETHYLENE GLYCOLS [Concomitant]
     Active Substance: POLYETHYLENE GLYCOLS
     Dosage: UNK

REACTIONS (8)
  - Urosepsis [Not Recovered/Not Resolved]
  - Escherichia urinary tract infection [Recovered/Resolved]
  - Bacterial pyelonephritis [Recovered/Resolved]
  - Pancreatitis [Recovered/Resolved]
  - Cholangitis [Recovered/Resolved]
  - Pyrexia [Recovered/Resolved]
  - Splenic infarction [None]
  - Rash maculo-papular [Recovered/Resolved]

NARRATIVE: CASE EVENT DATE: 20191031
